FAERS Safety Report 4615397-7 (Version None)
Quarter: 2005Q1

REPORT INFORMATION
  Report Type: 
  Country: None (occurrence: None)
  Receive Date: 20050322
  Receipt Date: 20050316
  Transmission Date: 20050727
  Serious: Yes (Other)
  Sender: FDA-Public Use
  Company Number: PHBS2005IT04021

PATIENT
  Age: 84 Year
  Sex: Female

DRUGS (2)
  1. RIVASTIGMINE [Suspect]
     Indication: DEMENTIA ALZHEIMER'S TYPE
     Dosage: 3 MG/D
     Route: 065
  2. BROMAZEPAM [Concomitant]
     Dosage: 1.5 MG/D
     Route: 065

REACTIONS (2)
  - DYSTONIA [None]
  - PLEUROTHOTONUS [None]
